FAERS Safety Report 9714027 (Version 1)
Quarter: 2013Q4

REPORT INFORMATION
  Report Type: Spontaneous
  Country: US (occurrence: US)
  Receive Date: 20131126
  Receipt Date: 20131126
  Transmission Date: 20140711
  Serious: No
  Sender: FDA-Public Use
  Company Number: US-GILEAD-2008-0018606

PATIENT
  Sex: Male
  Weight: 91.17 kg

DRUGS (24)
  1. LETAIRIS [Suspect]
     Indication: COR PULMONALE CHRONIC
     Route: 048
     Dates: start: 20080430
  2. REVATIO [Concomitant]
  3. COUMADIN [Concomitant]
  4. LASIX [Concomitant]
  5. METOPROLOL [Concomitant]
  6. PRAVASTATIN [Concomitant]
  7. HYDRALAZINE [Concomitant]
  8. METOLAZONE [Concomitant]
  9. MINOXIDIL [Concomitant]
  10. NORVASC [Concomitant]
  11. DIGOXIN [Concomitant]
  12. PREDNISONE [Concomitant]
  13. TYLENOL EX-STRENGTH [Concomitant]
  14. PROTONIX [Concomitant]
  15. PAXIL [Concomitant]
  16. NOVOLIN N INSULIN [Concomitant]
  17. NOVOLOG INSULIN [Concomitant]
  18. GLIPIZIDE [Concomitant]
  19. ALLOPURINOL [Concomitant]
  20. PROGRAF [Concomitant]
  21. ATIVAN [Concomitant]
  22. ASPIRIN EC [Concomitant]
  23. VITAMIN D [Concomitant]
  24. FERROUS SULF [Concomitant]

REACTIONS (3)
  - Abdominal pain upper [None]
  - Headache [None]
  - Local swelling [None]
